FAERS Safety Report 7985810-6 (Version None)
Quarter: 2011Q4

REPORT INFORMATION
  Report Type: 
  Country: None (occurrence: None)
  Receive Date: 20111216
  Receipt Date: 20111208
  Transmission Date: 20120403
  Serious: Yes (Hospitalization, Other)
  Sender: FDA-Public Use
  Company Number: DE-B.I. PHARMACEUTICALS,INC./RIDGEFIELD-2011-DE-06724DE

PATIENT
  Sex: Male

DRUGS (5)
  1. ASPIRIN [Concomitant]
     Dosage: 100 MG
  2. SIMVASTATIN [Concomitant]
     Dosage: 40 MG
  3. GALVUS [Suspect]
     Indication: TYPE 2 DIABETES MELLITUS
     Dosage: 100 MG
     Route: 048
     Dates: start: 20101201, end: 20110302
  4. METFORMIN HCL [Concomitant]
     Dosage: 850 MG
  5. AGGRENOX [Suspect]

REACTIONS (15)
  - CHROMATURIA [None]
  - GAMMA-GLUTAMYLTRANSFERASE INCREASED [None]
  - ASPARTATE AMINOTRANSFERASE INCREASED [None]
  - ALANINE AMINOTRANSFERASE INCREASED [None]
  - NAUSEA [None]
  - JAUNDICE [None]
  - PAIN IN EXTREMITY [None]
  - BLOOD GLUCOSE INCREASED [None]
  - RESTLESSNESS [None]
  - BLOOD ALKALINE PHOSPHATASE INCREASED [None]
  - HEPATITIS ACUTE [None]
  - MALAISE [None]
  - COUGH [None]
  - DECREASED APPETITE [None]
  - BLOOD BILIRUBIN INCREASED [None]
